FAERS Safety Report 11241676 (Version 1)
Quarter: 2015Q3

REPORT INFORMATION
  Report Type: Report from Study
  Country: FR (occurrence: FR)
  Receive Date: 20150706
  Receipt Date: 20150706
  Transmission Date: 20151125
  Serious: Yes (Hospitalization)
  Sender: FDA-Public Use
  Company Number: FR-GLAXOSMITHKLINE-FR2015GSK093866

PATIENT
  Age: 72 Year
  Sex: Female

DRUGS (7)
  1. CARDENSIEL [Concomitant]
     Active Substance: BISOPROLOL FUMARATE
  2. PLAVIX [Concomitant]
     Active Substance: CLOPIDOGREL BISULFATE
  3. KARDEGIC [Concomitant]
     Active Substance: ASPIRIN LYSINE
  4. TAHOR [Concomitant]
     Active Substance: ATORVASTATIN CALCIUM
  5. TRIATEC [Concomitant]
     Active Substance: RAMIPRIL
  6. OMEGA-3-ACID ETHYL ESTERS. [Suspect]
     Active Substance: OMEGA-3-ACID ETHYL ESTERS
     Indication: ISCHAEMIC HEART DISEASE PROPHYLAXIS
     Dosage: UNK
     Dates: start: 20081017
  7. INSPRA [Concomitant]
     Active Substance: EPLERENONE

REACTIONS (1)
  - Depression [Unknown]

NARRATIVE: CASE EVENT DATE: 20100510
